FAERS Safety Report 14471629 (Version 4)
Quarter: 2018Q1

REPORT INFORMATION
  Report Type: Spontaneous
  Country: PL (occurrence: PL)
  Receive Date: 20180131
  Receipt Date: 20180227
  Transmission Date: 20180509
  Serious: Yes (Death)
  Sender: FDA-Public Use
  Company Number: PL-GEHC-2018CSU000395

PATIENT

DRUGS (7)
  1. ATORVOX [Concomitant]
     Active Substance: ATORVASTATIN
     Indication: MYOCARDIAL ISCHAEMIA
     Dosage: 40 MG, QD
     Route: 048
     Dates: start: 20100312
  2. VISIPAQUE [Suspect]
     Active Substance: IODIXANOL
     Indication: INTERMITTENT CLAUDICATION
     Dosage: 25 ML, SINGLE
     Route: 013
     Dates: start: 20180123, end: 20180123
  3. PRESTARIUM                         /00790701/ [Concomitant]
     Active Substance: PERINDOPRIL
     Indication: MYOCARDIAL ISCHAEMIA
     Dosage: 10 MG, QD
     Route: 048
     Dates: start: 20100312
  4. PLAVIX [Concomitant]
     Active Substance: CLOPIDOGREL BISULFATE
     Indication: CORONARY ARTERIAL STENT INSERTION
     Dosage: 75 MG, QD
     Route: 048
     Dates: start: 20100312
  5. POLOCARD [Concomitant]
     Active Substance: ASPIRIN
     Indication: CORONARY ARTERIAL STENT INSERTION
     Dosage: 75 MG, QD
     Route: 048
     Dates: start: 20100312
  6. LIDOCAINE. [Concomitant]
     Active Substance: LIDOCAINE
     Indication: VESSEL PUNCTURE SITE ANAESTHESIA
     Route: 023
  7. BIOSOTAL [Concomitant]
     Indication: MYOCARDIAL ISCHAEMIA
     Dosage: 80 MG, BID
     Route: 048
     Dates: start: 20100312

REACTIONS (5)
  - Dyspnoea [Fatal]
  - Erythema [Fatal]
  - Contrast media reaction [Fatal]
  - Cardiac arrest [Fatal]
  - Anxiety [Fatal]

NARRATIVE: CASE EVENT DATE: 20180123
